FAERS Safety Report 4970959-2 (Version None)
Quarter: 2006Q2

REPORT INFORMATION
  Report Type: 
  Country: None (occurrence: None)
  Receive Date: 20060411
  Receipt Date: 20060411
  Transmission Date: 20061013
  Serious: Yes (Other)
  Sender: FDA-Public Use
  Company Number: None

PATIENT
  Age: 41 Year
  Sex: Female
  Weight: 79.3795 kg

DRUGS (1)
  1. ZICAM COLD REMEDY MAXIUM STRENGTH [Suspect]
     Indication: NASOPHARYNGITIS
     Dosage: ONE SPRAY IN EACH NOSE TWICE DAILY
     Route: 045
     Dates: start: 20041010, end: 20041220

REACTIONS (3)
  - AGEUSIA [None]
  - ANOSMIA [None]
  - SINUS DISORDER [None]
